FAERS Safety Report 13178378 (Version 1)
Quarter: 2017Q1

REPORT INFORMATION
  Report Type: Spontaneous
  Country: US (occurrence: US)
  Receive Date: 20170131
  Receipt Date: 20170131
  Transmission Date: 20170428
  Serious: Yes (Other)
  Sender: FDA-Public Use
  Company Number: None

PATIENT
  Age: 73 Year
  Sex: Male
  Weight: 105.75 kg

DRUGS (8)
  1. METFORMIN [Concomitant]
     Active Substance: METFORMIN HYDROCHLORIDE
  2. RAMIPRIL. [Concomitant]
     Active Substance: RAMIPRIL
  3. FARXIGA [Suspect]
     Active Substance: DAPAGLIFLOZIN PROPANEDIOL
     Indication: TYPE 2 DIABETES MELLITUS
     Dosage: ?          QUANTITY:1 TABLET(S);?
     Route: 048
     Dates: start: 20160315, end: 20170109
  4. INSULIN [Concomitant]
     Active Substance: INSULIN NOS
  5. TAMULOSIN [Concomitant]
     Active Substance: TAMSULOSIN
  6. ASPIRIN. [Concomitant]
     Active Substance: ASPIRIN
  7. SIMVISTATIN [Concomitant]
     Active Substance: SIMVASTATIN
  8. METOPROLOL. [Concomitant]
     Active Substance: METOPROLOL

REACTIONS (1)
  - Bladder transitional cell carcinoma [None]

NARRATIVE: CASE EVENT DATE: 20170109
